FAERS Safety Report 6032934-9 (Version None)
Quarter: 2008Q4

REPORT INFORMATION
  Report Type: 
  Country: None (occurrence: None)
  Receive Date: 20081224
  Receipt Date: 20081030
  Transmission Date: 20090506
  Serious: No
  Sender: FDA-Public Use
  Company Number: 2008PV037015

PATIENT
  Age: 68 Year
  Sex: Female

DRUGS (5)
  1. SYMLIN [Suspect]
     Indication: TYPE 2 DIABETES MELLITUS
     Dosage: 60 MCG;BID;SC; 45 MCG;BID; 30 MCG;BID; 15 MCG;BID
     Route: 058
     Dates: start: 20081001, end: 20081001
  2. SYMLIN [Suspect]
     Indication: TYPE 2 DIABETES MELLITUS
     Dosage: 60 MCG;BID;SC; 45 MCG;BID; 30 MCG;BID; 15 MCG;BID
     Route: 058
     Dates: start: 20081001, end: 20081001
  3. SYMLIN [Suspect]
     Indication: TYPE 2 DIABETES MELLITUS
     Dosage: 60 MCG;BID;SC; 45 MCG;BID; 30 MCG;BID; 15 MCG;BID
     Route: 058
     Dates: start: 20081001, end: 20081029
  4. SYMLIN [Suspect]
     Indication: TYPE 2 DIABETES MELLITUS
     Dosage: 60 MCG;BID;SC; 45 MCG;BID; 30 MCG;BID; 15 MCG;BID
     Route: 058
     Dates: start: 20081029
  5. METFORMIN HCL [Concomitant]

REACTIONS (2)
  - BLOOD GLUCOSE DECREASED [None]
  - BLOOD GLUCOSE INCREASED [None]
